FAERS Safety Report 8759525 (Version 1)
Quarter: 2012Q4

REPORT INFORMATION
  Report Type: 
  Country: US (occurrence: US)
  Receive Date: 20120829
  Receipt Date: 20120829
  Transmission Date: 20130627
  Serious: Yes (Other)
  Sender: FDA-Public Use
  Company Number: US-SHIRE-ALL1-2012-04004

PATIENT
  Age: 51 Year
  Sex: Female

DRUGS (1)
  1. VPRIV [Suspect]
     Indication: GAUCHER^S DISEASE
     Dosage: 4800 IU, 1x/2wks
     Route: 041
     Dates: start: 20120405

REACTIONS (4)
  - Chest discomfort [Unknown]
  - Cough [Unknown]
  - Blood pressure increased [Unknown]
  - Infusion related reaction [Unknown]
